FAERS Safety Report 26004549 (Version 2)
Quarter: 2025Q4

REPORT INFORMATION
  Report Type: Spontaneous
  Country: EU (occurrence: EU)
  Receive Date: 20251106
  Receipt Date: 20251118
  Transmission Date: 20260118
  Serious: Yes (Other)
  Sender: TEVA
  Company Number: EU-TEVA-VS-3388792

PATIENT
  Age: 15 Year
  Sex: Female

DRUGS (3)
  1. MYCOPHENOLATE MOFETIL [Suspect]
     Active Substance: MYCOPHENOLATE MOFETIL
     Indication: Central nervous system inflammation
     Route: 065
  2. METHYLPREDNISOLONE [Suspect]
     Active Substance: METHYLPREDNISOLONE
     Indication: Central nervous system inflammation
     Route: 042
  3. AZATHIOPRINE [Suspect]
     Active Substance: AZATHIOPRINE
     Indication: Central nervous system inflammation
     Route: 065

REACTIONS (3)
  - Gastrointestinal disorder [Recovered/Resolved]
  - Steroid dependence [Recovering/Resolving]
  - Drug ineffective [Unknown]
